FAERS Safety Report 9508487 (Version 1)
Quarter: 2013Q1

REPORT INFORMATION
  Report Type: Spontaneous
  Country: US (occurrence: None)
  Receive Date: 20130305
  Receipt Date: 20130305
  Transmission Date: 20140127
  Serious: Yes (Hospitalization)
  Sender: FDA-Public Use
  Company Number: 163-21880-11012522

PATIENT
  Age: 87 Year
  Sex: Female
  Weight: 79.38 kg

DRUGS (11)
  1. REVLIMID [Suspect]
     Indication: PLASMA CELL MYELOMA
     Route: 048
     Dates: end: 20101112
  2. TYLENOL ARTHRITIS (PARACETAMOL) [Concomitant]
  3. ASA (ACETYLSALICYLIC ACID) [Concomitant]
  4. ATENOLOL [Concomitant]
  5. MICARDIS (TELMISARTAN) [Concomitant]
  6. OXYVIT [Concomitant]
  7. POTASSIUM CHLORIDE [Concomitant]
  8. DEXAMETHASONE [Concomitant]
  9. MAGACE (MEGESTROL ACETATE) [Concomitant]
  10. DARVOCET (PROPACET) [Concomitant]
  11. PHENERGAN (PROMETHAZINE HYDROCHLORIDE) [Concomitant]

REACTIONS (2)
  - Renal failure [None]
  - Confusional state [None]
